FAERS Safety Report 7660345-9 (Version None)
Quarter: 2011Q3

REPORT INFORMATION
  Report Type: 
  Country: None (occurrence: None)
  Receive Date: 20110805
  Receipt Date: 20110729
  Transmission Date: 20111222
  Serious: Yes (Hospitalization)
  Sender: FDA-Public Use
  Company Number: MX-GILEAD-2011-0041347

PATIENT
  Sex: Male
  Weight: 63 kg

DRUGS (4)
  1. RANITIDINE HYDROCHLORIDE [Suspect]
     Indication: GASTRITIS
  2. TRUVADA [Suspect]
     Indication: HIV INFECTION
     Route: 048
     Dates: start: 20090108
  3. BUSCAPINA [Suspect]
     Indication: GASTRITIS
  4. TMC278 (RILPIVIRINE) [Suspect]
     Indication: HIV INFECTION
     Route: 048
     Dates: start: 20090108

REACTIONS (1)
  - PYLORIC STENOSIS [None]
